FAERS Safety Report 5638080-8 (Version None)
Quarter: 2008Q1

REPORT INFORMATION
  Report Type: 
  Country: None (occurrence: None)
  Receive Date: 20080226
  Receipt Date: 20080215
  Transmission Date: 20080703
  Serious: Yes (Hospitalization)
  Sender: FDA-Public Use
  Company Number: US-NOVOPROD-272257

PATIENT

DRUGS (1)
  1. NOVOSEVEN [Suspect]
     Indication: OPERATIVE HAEMORRHAGE
     Dosage: UNKNOWN
     Route: 042

REACTIONS (2)
  - PERIPHERAL ISCHAEMIA [None]
  - VENTRICULAR FAILURE [None]
